FAERS Safety Report 5106983-9 (Version None)
Quarter: 2006Q3

REPORT INFORMATION
  Report Type: 
  Country: None (occurrence: None)
  Receive Date: 20060913
  Receipt Date: 20060831
  Transmission Date: 20061208
  Serious: Yes (Other)
  Sender: FDA-Public Use
  Company Number: 2006S1000208

PATIENT
  Age: 53 Year
  Sex: Female

DRUGS (1)
  1. ACITRETIN [Suspect]
     Indication: PUSTULAR PSORIASIS
     Dosage: 10 MG; TIW; PO
     Route: 048
     Dates: start: 20040101, end: 20060501

REACTIONS (2)
  - BLOOD CREATININE INCREASED [None]
  - HYPOTHYROIDISM [None]
